FAERS Safety Report 8829651 (Version 1)
Quarter: 2012Q4

REPORT INFORMATION
  Report Type: Spontaneous
  Country: US (occurrence: None)
  Receive Date: 20121005
  Receipt Date: 20121005
  Transmission Date: 20130627
  Serious: Yes (Death)
  Sender: FDA-Public Use
  Company Number: None

PATIENT
  Age: 72 Year
  Sex: Female
  Weight: 140.3 kg

DRUGS (2)
  1. LOVENOX [Suspect]
     Dosage: 150 mg q12h sq
     Route: 058
  2. LOVENOX [Suspect]
     Indication: ATRIAL FIBRILLATION
     Dosage: 150 mg q12h sq
     Route: 058

REACTIONS (4)
  - Bradycardia [None]
  - Cardiac arrest [None]
  - Pulmonary haemorrhage [None]
  - Hypoxia [None]
